FAERS Safety Report 18174187 (Version 1)
Quarter: 2020Q3

REPORT INFORMATION
  Report Type: Spontaneous
  Country: US (occurrence: US)
  Receive Date: 20200819
  Receipt Date: 20200819
  Transmission Date: 20201103
  Serious: No
  Sender: FDA-Public Use
  Company Number: None

PATIENT
  Age: 8 Year
  Sex: Female
  Weight: 26.5 kg

DRUGS (1)
  1. GENOTROPIN [Suspect]
     Active Substance: SOMATROPIN
     Indication: GROWTH HORMONE DEFICIENCY
     Route: 058
     Dates: end: 20200810

REACTIONS (4)
  - Reaction to preservatives [None]
  - Wrong technique in product usage process [None]
  - Product dose omission issue [None]
  - Product communication issue [None]

NARRATIVE: CASE EVENT DATE: 20200812
